FAERS Safety Report 7325565-1 (Version None)
Quarter: 2011Q1

REPORT INFORMATION
  Report Type: 
  Country: None (occurrence: None)
  Receive Date: 20110302
  Receipt Date: 20110225
  Transmission Date: 20110831
  Serious: Yes (Other)
  Sender: FDA-Public Use
  Company Number: JP-SANOFI-AVENTIS-200711816JP

PATIENT
  Age: 17 Year
  Sex: Female

DRUGS (4)
  1. ALLEGRA [Suspect]
     Indication: URTICARIA
     Route: 048
     Dates: start: 20070627, end: 20070705
  2. BOSMIN [Concomitant]
     Indication: BLOOD PRESSURE DECREASED
     Dates: start: 20070626, end: 20070626
  3. CELESTAMINE TAB [Concomitant]
     Indication: URTICARIA
     Dates: start: 20070525
  4. TALION [Concomitant]
     Indication: URTICARIA
     Dates: start: 20070525

REACTIONS (2)
  - SYNCOPE [None]
  - HYPOTENSION [None]
